FAERS Safety Report 8838791 (Version 2)
Quarter: 2012Q4

REPORT INFORMATION
  Report Type: 
  Country: US (occurrence: US)
  Receive Date: 20121014
  Receipt Date: 20121205
  Transmission Date: 20130627
  Serious: Yes (Other)
  Sender: FDA-Public Use
  Company Number: US-B.I. PHARMACEUTICALS,INC./RIDGEFIELD-2012-BP-25172BP

PATIENT
  Sex: Female
  Weight: 54 kg

DRUGS (5)
  1. TRADJENTA [Suspect]
     Indication: DIABETES MELLITUS
     Dosage: 5 mg
     Route: 048
     Dates: start: 2011, end: 2012
  2. METFORMIN [Concomitant]
     Indication: DIABETES MELLITUS
     Dosage: 2000 mg
     Route: 048
     Dates: start: 2007
  3. VENLAFAXINE [Concomitant]
     Indication: ANXIETY
     Dosage: 75 mg
     Route: 048
     Dates: start: 2007
  4. LISINOPRIL [Concomitant]
     Indication: HYPERTENSION
     Dosage: 40 mg
     Route: 048
     Dates: start: 2007
  5. CLONAZEPAM [Concomitant]
     Indication: RESTLESS LEGS SYNDROME
     Dosage: 1 mg

REACTIONS (2)
  - Hepatic failure [Not Recovered/Not Resolved]
  - Blood glucose increased [Not Recovered/Not Resolved]
